FAERS Safety Report 7138094-5 (Version None)
Quarter: 2010Q4

REPORT INFORMATION
  Report Type: 
  Country: None (occurrence: None)
  Receive Date: 20101206
  Receipt Date: 20101124
  Transmission Date: 20110411
  Serious: Yes (Hospitalization, Other)
  Sender: FDA-Public Use
  Company Number: US-TEVA-257864USA

PATIENT
  Sex: Female
  Weight: 68.1 kg

DRUGS (3)
  1. QUININE SULFATE [Suspect]
     Indication: MUSCLE SPASMS
  2. PROPRANOLOL [Concomitant]
     Indication: HYPERTENSION
  3. CONJUGATED ESTROGENS [Concomitant]
     Indication: MENOPAUSE

REACTIONS (4)
  - ANGIOPATHY [None]
  - BLOOD DISORDER [None]
  - DRUG HYPERSENSITIVITY [None]
  - THROMBOCYTOPENIA [None]
